FAERS Safety Report 16895927 (Version 1)
Quarter: 2019Q4

REPORT INFORMATION
  Report Type: Spontaneous
  Country: US (occurrence: US)
  Receive Date: 20191008
  Receipt Date: 20191008
  Transmission Date: 20200122
  Serious: No
  Sender: FDA-Public Use
  Company Number: US-PERRIGO-18US014809

PATIENT
  Age: 75 Year
  Sex: Male
  Weight: 102.04 kg

DRUGS (4)
  1. IMIQUIMOD. [Suspect]
     Active Substance: IMIQUIMOD
     Indication: MALIGNANT MELANOMA
     Dosage: UNK, QD
     Route: 061
     Dates: start: 201810, end: 201811
  2. LIPID MODIFYING AGENTS [Concomitant]
     Active Substance: UNSPECIFIED INGREDIENT
     Indication: BLOOD CHOLESTEROL INCREASED
     Dosage: UNK
     Route: 065
  3. IMIQUIMOD. [Suspect]
     Active Substance: IMIQUIMOD
     Dosage: UNK, BID
     Route: 061
     Dates: start: 201811, end: 20181201
  4. ANTIHYPERTENSIVES [Concomitant]
     Active Substance: UNSPECIFIED INGREDIENT
     Indication: HYPERTENSION
     Dosage: UNK
     Route: 065

REACTIONS (5)
  - Productive cough [Not Recovered/Not Resolved]
  - Bronchitis [Not Recovered/Not Resolved]
  - Asthenia [Not Recovered/Not Resolved]
  - Cough [Not Recovered/Not Resolved]
  - Off label use [Recovered/Resolved]

NARRATIVE: CASE EVENT DATE: 201810
